FAERS Safety Report 7238961-8 (Version None)
Quarter: 2011Q1

REPORT INFORMATION
  Report Type: 
  Country: None (occurrence: None)
  Receive Date: 20110119
  Receipt Date: 20110119
  Transmission Date: 20110831
  Serious: No
  Sender: FDA-Public Use
  Company Number: None

PATIENT

DRUGS (1)
  1. LOVAZA [Suspect]
     Indication: BLOOD CHOLESTEROL INCREASED
     Dosage: 2 CAPS TWICE DAILY PO
     Route: 048
     Dates: start: 20090601, end: 20101201

REACTIONS (2)
  - ARTHRALGIA [None]
  - BONE DENSITY DECREASED [None]
